FAERS Safety Report 7474393-5 (Version None)
Quarter: 2011Q2

REPORT INFORMATION
  Report Type: 
  Country: None (occurrence: None)
  Receive Date: 20110511
  Receipt Date: 20110510
  Transmission Date: 20111010
  Serious: No
  Sender: FDA-Public Use
  Company Number: US-BAYER-2011-040127

PATIENT
  Age: 80 Year
  Sex: Female

DRUGS (1)
  1. AVELOX [Suspect]
     Indication: BRONCHOPNEUMONIA
     Dosage: 400 MG, QD
     Route: 048
     Dates: start: 20110507

REACTIONS (2)
  - DIZZINESS [None]
  - DISCOMFORT [None]
